FAERS Safety Report 19418843 (Version 1)
Quarter: 2021Q2

REPORT INFORMATION
  Report Type: Spontaneous
  Country: CN (occurrence: CN)
  Receive Date: 20210615
  Receipt Date: 20210615
  Transmission Date: 20210717
  Serious: Yes (Hospitalization)
  Sender: FDA-Public Use
  Company Number: CN-PFIZER INC-2021652856

PATIENT
  Age: 89 Year
  Sex: Male
  Weight: 60 kg

DRUGS (4)
  1. MEPEM [Suspect]
     Active Substance: MEROPENEM
     Indication: INFECTION
     Dosage: 0.5 G, 2X/DAY
     Route: 042
     Dates: start: 20210518, end: 20210522
  2. SODIUM CHLORIDE INJECTION [Concomitant]
     Active Substance: SODIUM CHLORIDE
     Dosage: 100 ML, 2X/DAY
     Route: 042
     Dates: start: 20210518, end: 20210522
  3. LEVOFLOXACIN. [Suspect]
     Active Substance: LEVOFLOXACIN
     Indication: INFECTION
     Dosage: 0.125 G, 1X/DAY
     Route: 042
     Dates: start: 20210518, end: 20210522
  4. GLUCOSE INJECTION MP [Concomitant]
     Dosage: 100 ML, 1X/DAY
     Route: 042
     Dates: start: 20210518, end: 20210522

REACTIONS (2)
  - Platelet count decreased [Recovering/Resolving]
  - Renal impairment [Recovering/Resolving]

NARRATIVE: CASE EVENT DATE: 20210522
